FAERS Safety Report 13338768 (Version 3)
Quarter: 2017Q2

REPORT INFORMATION
  Report Type: Spontaneous
  Country: GB (occurrence: GB)
  Receive Date: 20170315
  Receipt Date: 20170418
  Transmission Date: 20170830
  Serious: Yes (Life-Threatening, Hospitalization, Other)
  Sender: FDA-Public Use
  Company Number: GB-PFIZER INC-2017108483

PATIENT
  Age: 13 Year
  Sex: Female

DRUGS (21)
  1. SODIUM CHLORIDE. [Suspect]
     Active Substance: SODIUM CHLORIDE
     Indication: HAEMODIALYSIS
     Dosage: UNK
     Route: 042
     Dates: end: 20170221
  2. PIRITON [Suspect]
     Active Substance: CHLORPHENIRAMINE MALEATE
     Dosage: 10 MG, 2X/DAY
     Route: 042
     Dates: start: 20170221
  3. NIFEDIPINE. [Suspect]
     Active Substance: NIFEDIPINE
     Dosage: UNK
     Dates: start: 20170221
  4. DARBEPOETIN ALFA [Concomitant]
     Active Substance: DARBEPOETIN ALFA
     Indication: END STAGE RENAL DISEASE
     Dosage: 10 MG, UNK
     Route: 042
  5. VENOFER [Concomitant]
     Active Substance: IRON SUCROSE
     Indication: HIV INFECTION
     Dosage: 20 MG, WEEKLY
     Route: 042
  6. CODEINE [Suspect]
     Active Substance: CODEINE
     Dosage: UNK
     Dates: start: 20170221
  7. DARBEPOETIN ALFA [Concomitant]
     Active Substance: DARBEPOETIN ALFA
     Indication: HIV INFECTION
  8. PREDNISOLONE. [Concomitant]
     Active Substance: PREDNISOLONE
     Indication: HIV INFECTION
     Dosage: 2.5 MG, UNK
     Route: 048
  9. VENOFER [Concomitant]
     Active Substance: IRON SUCROSE
     Indication: END STAGE RENAL DISEASE
  10. ABACAVIR. [Concomitant]
     Active Substance: ABACAVIR
     Dosage: 300 MG, 2X/DAY
     Route: 048
  11. LAMIVUDINE. [Concomitant]
     Active Substance: LAMIVUDINE
     Dosage: 50 MG, 1X/DAY
     Route: 048
  12. PREDNISOLONE. [Concomitant]
     Active Substance: PREDNISOLONE
     Indication: END STAGE RENAL DISEASE
  13. HEPARIN [Suspect]
     Active Substance: HEPARIN SODIUM
     Indication: ANTICOAGULANT THERAPY
     Dosage: 500 UNITS/HR
  14. ALFACALCIDOL [Concomitant]
     Active Substance: ALFACALCIDOL
     Dosage: 1 UG, 1X/DAY
     Route: 048
  15. PIRITON [Suspect]
     Active Substance: CHLORPHENIRAMINE MALEATE
     Dosage: 4 MG, UNK
     Route: 048
     Dates: start: 20170221
  16. ASPIRIN (E.C.) [Concomitant]
     Active Substance: ASPIRIN
     Dosage: 37.5 MG, 1X/DAY
     Route: 048
  17. TACROLIMUS. [Concomitant]
     Active Substance: TACROLIMUS
     Indication: HIV INFECTION
  18. CALCIUM ACETATE. [Concomitant]
     Active Substance: CALCIUM ACETATE
     Dosage: 950 MG, 3X/DAY
     Route: 048
  19. KALETRA [Concomitant]
     Active Substance: LOPINAVIR\RITONAVIR
     Dosage: 1 DF, (1 TABLET)
     Route: 048
  20. TACROLIMUS. [Concomitant]
     Active Substance: TACROLIMUS
     Indication: END STAGE RENAL DISEASE
     Dosage: 0.1 MG, UNK
     Route: 048
  21. HYDROCORTISONE SODIUM SUCCINATE [Suspect]
     Active Substance: HYDROCORTISONE SODIUM SUCCINATE
     Dosage: 200 MG, UNK
     Route: 042
     Dates: start: 20170221

REACTIONS (8)
  - Haemodialysis complication [Unknown]
  - Rash [Unknown]
  - Abdominal pain [Unknown]
  - Ocular hyperaemia [Unknown]
  - Haemolysis [Unknown]
  - Blood pressure systolic increased [Unknown]
  - Ocular icterus [Unknown]
  - Swelling face [Unknown]

NARRATIVE: CASE EVENT DATE: 20170221
